FAERS Safety Report 17734802 (Version 1)
Quarter: 2020Q2

REPORT INFORMATION
  Report Type: Spontaneous
  Country: US (occurrence: US)
  Receive Date: 20200501
  Receipt Date: 20200501
  Transmission Date: 20200714
  Serious: No
  Sender: FDA-Public Use
  Company Number: None

PATIENT
  Age: 72 Year
  Sex: Male
  Weight: 89.36 kg

DRUGS (14)
  1. MULTIVITAMIN [Concomitant]
     Active Substance: VITAMINS
  2. TEMAZEPAM 30MG [Concomitant]
     Active Substance: TEMAZEPAM
  3. QUETIAPINE 400MG [Concomitant]
     Active Substance: QUETIAPINE
  4. TAMADOL 50MG [Concomitant]
  5. VENLAFAXINE 75MG [Concomitant]
     Active Substance: VENLAFAXINE HYDROCHLORIDE
  6. COMBIGAN [Concomitant]
     Active Substance: BRIMONIDINE TARTRATE\TIMOLOL MALEATE
  7. LUPRON DEPOT 45MG [Concomitant]
  8. SENNOSIDES 8.6MG [Concomitant]
  9. ABIRATERONE. [Suspect]
     Active Substance: ABIRATERONE ACETATE
     Indication: PROSTATE CANCER
     Route: 048
     Dates: start: 20200121, end: 20200501
  10. COQ10 100MG [Concomitant]
  11. RANITIDINE150MG [Concomitant]
  12. ROSUVASTATIN 10MG [Concomitant]
     Active Substance: ROSUVASTATIN
  13. CLONAZEPAM 1MG [Concomitant]
     Active Substance: CLONAZEPAM
  14. ZIOPTAN [Concomitant]
     Active Substance: TAFLUPROST

REACTIONS (1)
  - Disease progression [None]

NARRATIVE: CASE EVENT DATE: 20200501
